FAERS Safety Report 7641628-5 (Version None)
Quarter: 2011Q3

REPORT INFORMATION
  Report Type: 
  Country: None (occurrence: None)
  Receive Date: 20110728
  Receipt Date: 20110701
  Transmission Date: 20111222
  Serious: Yes (Hospitalization)
  Sender: FDA-Public Use
  Company Number: US-GLAXOSMITHKLINE-A0807054A

PATIENT
  Age: 66 Year
  Sex: Female
  Weight: 60.9 kg

DRUGS (4)
  1. LOTENSIN [Concomitant]
  2. DIABETA [Concomitant]
  3. LOPRESSOR [Concomitant]
  4. AVANDIA [Suspect]
     Indication: DIABETES MELLITUS
     Dosage: 4MG PER DAY
     Route: 048
     Dates: start: 19990101, end: 20070101

REACTIONS (4)
  - STENT PLACEMENT [None]
  - EYE INJURY [None]
  - MYOCARDIAL INFARCTION [None]
  - CEREBROVASCULAR ACCIDENT [None]
